FAERS Safety Report 6415799-2 (Version None)
Quarter: 2009Q4

REPORT INFORMATION
  Report Type: 
  Country: None (occurrence: None)
  Receive Date: 20091027
  Receipt Date: 20091015
  Transmission Date: 20100525
  Serious: Yes (Hospitalization, Other)
  Sender: FDA-Public Use
  Company Number: US-PFIZER INC-2009245380

PATIENT
  Sex: Male

DRUGS (1)
  1. SUTENT [Suspect]
     Dosage: 50 MG, UNK

REACTIONS (5)
  - CARDIAC FAILURE CONGESTIVE [None]
  - JAUNDICE [None]
  - MEDICAL DEVICE COMPLICATION [None]
  - PULMONARY OEDEMA [None]
  - RESPIRATORY FAILURE [None]
